FAERS Safety Report 21421325 (Version 1)
Quarter: 2022Q4

REPORT INFORMATION
  Report Type: Spontaneous
  Country: DE (occurrence: DE)
  Receive Date: 20221007
  Receipt Date: 20221007
  Transmission Date: 20230113
  Serious: Yes (Other)
  Sender: FDA-Public Use
  Company Number: DE-UCBSA-2022058381

PATIENT
  Age: 79 Year
  Sex: Female

DRUGS (2)
  1. NEUPRO [Suspect]
     Active Substance: ROTIGOTINE
     Indication: Parkinson^s disease
     Dosage: 8MG/24H STRENGTH
     Route: 062
     Dates: end: 20220926
  2. LEVODOPA [Concomitant]
     Active Substance: LEVODOPA
     Indication: Parkinson^s disease
     Dosage: UNK

REACTIONS (2)
  - Parkinson^s disease [Unknown]
  - Skin irritation [Unknown]

NARRATIVE: CASE EVENT DATE: 20220901
